FAERS Safety Report 23710875 (Version 2)
Quarter: 2024Q2

REPORT INFORMATION
  Report Type: Report from Study
  Country: US (occurrence: US)
  Receive Date: 20240405
  Receipt Date: 20240410
  Transmission Date: 20240716
  Serious: Yes (Other)
  Sender: FDA-Public Use
  Company Number: US-ABBVIE-5704842

PATIENT
  Sex: Female
  Weight: 67.585 kg

DRUGS (5)
  1. SKYRIZI [Suspect]
     Active Substance: RISANKIZUMAB-RZAA
     Indication: Crohn^s disease
     Dosage: 360 MG
     Route: 058
     Dates: start: 202309
  2. SKYRIZI [Suspect]
     Active Substance: RISANKIZUMAB-RZAA
     Indication: Crohn^s disease
     Dosage: LAST ADMIN DATE- 2023?FREQUENCY TEXT: WEEK 0, WEEK 4, WEEK 8
     Route: 042
     Dates: start: 20230723
  3. HYDROCODONE [Concomitant]
     Active Substance: HYDROCODONE
     Indication: Pain
  4. PANTOPRAZOLE [Concomitant]
     Active Substance: PANTOPRAZOLE
     Indication: Gastrooesophageal reflux disease
  5. MIRTAZAPINE [Concomitant]
     Active Substance: MIRTAZAPINE
     Indication: Sleep disorder

REACTIONS (1)
  - Oesophageal mass [Recovering/Resolving]
